FAERS Safety Report 5776991-3 (Version None)
Quarter: 2008Q2

REPORT INFORMATION
  Report Type: 
  Country: None (occurrence: None)
  Receive Date: 20080616
  Receipt Date: 20080604
  Transmission Date: 20081010
  Serious: Yes (Life-Threatening, Hospitalization)
  Sender: FDA-Public Use
  Company Number: ADE2008-0221

PATIENT
  Age: 24 Year
  Sex: Female

DRUGS (6)
  1. AMOXICILLIN [Suspect]
  2. SERTRALINE [Suspect]
  3. CLOZARIL [Suspect]
     Indication: SCHIZOPHRENIA
     Dosage: 1000MG X 1 DOSE ORAL
     Route: 048
     Dates: start: 20030623, end: 20060504
  4. HYOSCINE [Suspect]
  5. MOCLOBEMIDE [Concomitant]
  6. SULPIRIDE [Concomitant]

REACTIONS (5)
  - LIVER FUNCTION TEST ABNORMAL [None]
  - LOSS OF CONSCIOUSNESS [None]
  - MULTIPLE DRUG OVERDOSE [None]
  - VOMITING [None]
  - WEIGHT DECREASED [None]
